FAERS Safety Report 7502420-5 (Version None)
Quarter: 2011Q2

REPORT INFORMATION
  Report Type: 
  Country: None (occurrence: None)
  Receive Date: 20110525
  Receipt Date: 20110518
  Transmission Date: 20111010
  Serious: Yes (Hospitalization)
  Sender: FDA-Public Use
  Company Number: FR-PFIZER INC-2011106270

PATIENT
  Age: 45 Year
  Sex: Female

DRUGS (7)
  1. FLUCONAZOLE [Interacting]
     Indication: VULVOVAGINAL CANDIDIASIS
  2. SITAGLIPTIN [Suspect]
     Indication: TYPE 2 DIABETES MELLITUS
     Dosage: 100 MG, 1X/DAY
     Route: 048
     Dates: start: 20091101, end: 20110319
  3. ZOCOR [Concomitant]
     Indication: HYPERTRIGLYCERIDAEMIA
     Dosage: 20 MG, 1X/DAY
     Route: 048
     Dates: start: 20091101, end: 20110319
  4. ZOLPIDEM [Concomitant]
     Indication: INSOMNIA
     Dosage: UNK
     Route: 048
     Dates: end: 20110319
  5. FLUCONAZOLE [Interacting]
     Indication: ORAL CANDIDIASIS
     Dosage: 50 MG, 1X/DAY
     Route: 048
     Dates: start: 20110308, end: 20110323
  6. CERAZETTE [Concomitant]
     Indication: CONTRACEPTION
     Route: 048
  7. DIAMICRON [Interacting]
     Indication: TYPE 2 DIABETES MELLITUS
     Dosage: 30 MG, 2X/DAY
     Route: 048
     Dates: start: 20091101, end: 20110319

REACTIONS (2)
  - PANCREATITIS NECROTISING [None]
  - DRUG INTERACTION [None]
